FAERS Safety Report 9953686 (Version 1)
Quarter: 2014Q1

REPORT INFORMATION
  Report Type: Report from Study
  Country: US (occurrence: US)
  Receive Date: 20140304
  Receipt Date: 20140304
  Transmission Date: 20141002
  Serious: No
  Sender: FDA-Public Use
  Company Number: US-ABBVIE-13P-163-1080469-00

PATIENT
  Age: 49 Year
  Sex: Male

DRUGS (10)
  1. HUMIRA [Suspect]
     Indication: PSORIATIC ARTHROPATHY
     Route: 058
     Dates: start: 20120803, end: 201302
  2. HUMIRA [Suspect]
     Route: 058
     Dates: start: 20130408
  3. FOLIC ACID [Concomitant]
     Indication: VITAMIN SUPPLEMENTATION
     Dosage: 1 MG DAILY
  4. METHOTREXATE [Concomitant]
     Indication: PSORIATIC ARTHROPATHY
  5. METOPROLOL [Concomitant]
     Indication: HYPERTENSION
     Dosage: 25 MG DAILY
  6. AMLODIPINE [Concomitant]
     Indication: HYPERTENSION
     Dosage: 10 MG DAILY
  7. BUPROPION [Concomitant]
     Indication: DEPRESSION
     Dosage: 150 MG DAILY
  8. BUPROPION HCL [Concomitant]
     Indication: DEPRESSION
     Dosage: 200 MG DAILY
  9. DEXILANT [Concomitant]
     Indication: GASTROOESOPHAGEAL REFLUX DISEASE
     Dosage: 60 MG DAILY
  10. TYLENOL [Concomitant]

REACTIONS (3)
  - Injection site mass [Recovering/Resolving]
  - Joint swelling [Recovering/Resolving]
  - Arthralgia [Recovering/Resolving]
